FAERS Safety Report 9766890 (Version 3)
Quarter: 2014Q1

REPORT INFORMATION
  Report Type: Spontaneous
  Country: US (occurrence: US)
  Receive Date: 20131217
  Receipt Date: 20140114
  Transmission Date: 20141002
  Serious: No
  Sender: FDA-Public Use
  Company Number: US-BIOGENIDEC-2013BI119295

PATIENT
  Age: 40 Year
  Sex: Female

DRUGS (19)
  1. TECFIDERA [Suspect]
     Indication: MULTIPLE SCLEROSIS
  2. TECFIDERA [Suspect]
     Indication: MULTIPLE SCLEROSIS
     Route: 048
  3. TECFIDERA [Suspect]
     Indication: MULTIPLE SCLEROSIS
     Route: 048
     Dates: start: 20131112
  4. AMBIEN [Concomitant]
  5. BACLOFEN [Concomitant]
  6. BENADRYL [Concomitant]
  7. CORGARD [Concomitant]
  8. CYMBALTA [Concomitant]
  9. IMITREX [Concomitant]
  10. KLONOPIN [Concomitant]
  11. LEVETIRACETAM ER [Concomitant]
  12. MOTRIN IB [Concomitant]
  13. NEURONTIN [Concomitant]
  14. PRILOSEC [Concomitant]
  15. SYNTHROID [Concomitant]
  16. TOPAMAX [Concomitant]
  17. VITAMIN B12 [Concomitant]
  18. VIT D3 [Concomitant]
  19. ZANAFLEX [Concomitant]

REACTIONS (7)
  - Tooth infection [Unknown]
  - Menstruation irregular [Unknown]
  - Dysmenorrhoea [Unknown]
  - Headache [Unknown]
  - Diarrhoea [Unknown]
  - Flushing [Unknown]
  - Nausea [Unknown]
